FAERS Safety Report 5201466-X (Version None)
Quarter: 2007Q1

REPORT INFORMATION
  Report Type: 
  Country: None (occurrence: None)
  Receive Date: 20070104
  Receipt Date: 20061222
  Transmission Date: 20070707
  Serious: Yes (Other)
  Sender: FDA-Public Use
  Company Number: 2006US-04036

PATIENT
  Age: 32 Year
  Sex: Female

DRUGS (2)
  1. ISOTRETINOIN [Suspect]
     Indication: ACNE
     Dosage: 30 MG BID; 20 MG BID
     Dates: start: 20060601, end: 20060701
  2. ISOTRETINOIN [Suspect]
     Indication: ACNE
     Dosage: 30 MG BID; 20 MG BID
     Dates: start: 20061004, end: 20061213

REACTIONS (4)
  - DEPRESSION [None]
  - MENSTRUATION IRREGULAR [None]
  - MYALGIA [None]
  - RECTAL HAEMORRHAGE [None]
